FAERS Safety Report 20990357 (Version 1)
Quarter: 2022Q2

REPORT INFORMATION
  Report Type: Spontaneous
  Country: US (occurrence: None)
  Receive Date: 20220622
  Receipt Date: 20220622
  Transmission Date: 20220721
  Serious: No
  Sender: FDA-Public Use
  Company Number: 2022A228075

PATIENT
  Age: 92 Year
  Sex: Female

DRUGS (2)
  1. PRILOSEC OTC [Suspect]
     Active Substance: OMEPRAZOLE MAGNESIUM
     Dosage: UNK
     Route: 065
  2. PRILOSEC OTC [Suspect]
     Active Substance: OMEPRAZOLE MAGNESIUM
     Dosage: 2 TABLET, MORNING (TOOK IT BEFORE BREAKFAST AND AFTER BREAKFAST)
     Route: 048
     Dates: start: 20220614

REACTIONS (3)
  - Asthenia [Not Recovered/Not Resolved]
  - Balance disorder [Unknown]
  - Overdose [Unknown]

NARRATIVE: CASE EVENT DATE: 20220614
